FAERS Safety Report 16753567 (Version 3)
Quarter: 2019Q4

REPORT INFORMATION
  Report Type: Spontaneous
  Country: GB (occurrence: GB)
  Receive Date: 20190829
  Receipt Date: 20191025
  Transmission Date: 20200122
  Serious: Yes (Hospitalization, Other)
  Sender: FDA-Public Use
  Company Number: GB-EMCURE PHARMACEUTICALS LTD-2019-EPL-0606

PATIENT
  Age: 11 Year
  Sex: Male

DRUGS (4)
  1. VITAMIN D                          /00107901/ [Concomitant]
     Active Substance: ERGOCALCIFEROL
     Indication: PROPHYLAXIS
     Dosage: VITAMIN D SUPPLEMENTATION
  2. CALCIUM [Concomitant]
     Active Substance: CALCIUM
     Indication: PROPHYLAXIS
     Dosage: CALCIUM SUPPLEMENTATION AS PER HOSPITAL PROTOCOL
  3. ZOLEDRONIC ACID [Suspect]
     Active Substance: ZOLEDRONIC ACID
     Indication: SPINAL COMPRESSION FRACTURE
     Dosage: RECEIVED A HALF DOSE OF ZOLEDRONATE (0.025 MG/KG), INFUSION
  4. DEFLAZACORT [Concomitant]
     Active Substance: DEFLAZACORT
     Indication: DUCHENNE MUSCULAR DYSTROPHY
     Dosage: 18 MILLIGRAM,DAILY

REACTIONS (6)
  - Hypophosphataemia [Recovered/Resolved]
  - Myoglobinuria [Recovered/Resolved]
  - Product use issue [Unknown]
  - Inflammation [Recovered/Resolved]
  - Rhabdomyolysis [Recovered/Resolved]
  - Hypocalcaemia [Recovered/Resolved]
